FAERS Safety Report 8175889-3 (Version None)
Quarter: 2012Q1

REPORT INFORMATION
  Report Type: 
  Country: None (occurrence: None)
  Receive Date: 20120228
  Receipt Date: 20120215
  Transmission Date: 20120608
  Serious: Yes (Hospitalization)
  Sender: FDA-Public Use
  Company Number: DSA_55211_2012

PATIENT
  Age: 88 Year
  Sex: Male

DRUGS (16)
  1. DUPHALAC [Concomitant]
  2. ACETAMINOPHEN [Concomitant]
  3. MODOPAR [Concomitant]
  4. MORPHINE SULFATE [Concomitant]
  5. LASIX [Concomitant]
  6. NORMACOL /01713401/ [Concomitant]
  7. AMLODIPINE BESYLATE [Concomitant]
  8. NICARDIPINE HYDROCHLORIDE [Concomitant]
  9. PAROXETINE HYDROCHLORIDE [Concomitant]
  10. COVERSYL /00790702/ [Concomitant]
  11. ATROVENT [Concomitant]
  12. FLAGYL [Suspect]
     Indication: CLOSTRIDIUM DIFFICILE COLITIS
     Dosage: (500 MG TID ORAL)
     Route: 048
     Dates: start: 20120106, end: 20120122
  13. FLAGYL [Suspect]
     Indication: DIARRHOEA
     Dosage: (500 MG TID ORAL)
     Route: 048
     Dates: start: 20120106, end: 20120122
  14. AUGMENTIN '125' [Suspect]
     Indication: PROSTATITIS
     Dosage: (2 DF TID ORAL)
     Route: 048
     Dates: start: 20120103, end: 20120117
  15. SYMBICORT [Concomitant]
  16. INNOHEP [Concomitant]

REACTIONS (2)
  - CLOSTRIDIUM TEST POSITIVE [None]
  - DERMATITIS BULLOUS [None]
